FAERS Safety Report 10018883 (Version 3)
Quarter: 2014Q2

REPORT INFORMATION
  Report Type: Spontaneous
  Country: US (occurrence: US)
  Receive Date: 20140318
  Receipt Date: 20140514
  Transmission Date: 20141212
  Serious: No
  Sender: FDA-Public Use
  Company Number: US-009507513-1403USA002174

PATIENT
  Sex: Female
  Weight: 77.98 kg

DRUGS (3)
  1. OXYTROL FOR WOMEN [Suspect]
     Indication: INCONTINENCE
     Dosage: 1 DF, Q4D
     Route: 062
     Dates: start: 201401, end: 201402
  2. OXYTROL FOR WOMEN [Suspect]
     Dosage: 1 DF, Q4D
     Route: 062
     Dates: start: 201402, end: 201403
  3. ASPIRIN [Concomitant]
     Indication: PRODUCT USED FOR UNKNOWN INDICATION
     Dosage: UNK, UNKNOWN

REACTIONS (7)
  - Application site burn [Recovered/Resolved]
  - Discomfort [Unknown]
  - Dry skin [Unknown]
  - Erythema [Unknown]
  - Pruritus [Recovering/Resolving]
  - Product quality issue [Unknown]
  - Product packaging issue [Unknown]
